FAERS Safety Report 10210998 (Version 2)
Quarter: 2014Q2

REPORT INFORMATION
  Report Type: Spontaneous
  Country: AT (occurrence: AT)
  Receive Date: 20140527
  Receipt Date: 20140602
  Transmission Date: 20141212
  Serious: Yes (Other)
  Sender: FDA-Public Use
  Company Number: PHHY2014AT063540

PATIENT
  Sex: Male

DRUGS (1)
  1. AMIODARONE [Suspect]

REACTIONS (1)
  - Atrial fibrillation [Unknown]
